FAERS Safety Report 7539910-5 (Version None)
Quarter: 2011Q2

REPORT INFORMATION
  Report Type: 
  Country: None (occurrence: None)
  Receive Date: 20110603
  Receipt Date: 20110522
  Transmission Date: 20111010
  Serious: Yes (Other)
  Sender: FDA-Public Use
  Company Number: 2011SP024065

PATIENT
  Sex: Female

DRUGS (1)
  1. CLARITIN REDITABS [Suspect]
     Indication: SEASONAL ALLERGY
     Dosage: 10 MG;BID;PO
     Route: 048
     Dates: end: 20110522

REACTIONS (4)
  - SWOLLEN TONGUE [None]
  - THROAT TIGHTNESS [None]
  - LIP SWELLING [None]
  - DRUG INEFFECTIVE [None]
